FAERS Safety Report 6993938-2 (Version None)
Quarter: 2010Q3

REPORT INFORMATION
  Report Type: 
  Country: None (occurrence: None)
  Receive Date: 20100917
  Receipt Date: 20100914
  Transmission Date: 20110219
  Serious: Yes (Hospitalization, Other)
  Sender: FDA-Public Use
  Company Number: TR-ROXANE LABORATORIES, INC.-2010-RO-01226RO

PATIENT
  Age: 66 Year
  Sex: Female

DRUGS (5)
  1. LITHIUM CARBONATE [Suspect]
     Indication: MAJOR DEPRESSION
     Dosage: 600 MG
  2. PAROXETINE HCL [Suspect]
     Dosage: 20 MG
  3. ASPIRIN [Suspect]
     Dosage: 100 MG
  4. GLICLAZIDE [Suspect]
     Dosage: 120 MG
  5. LEVOTHYROXINE [Suspect]
     Dosage: 100 MCG

REACTIONS (5)
  - ELECTROCARDIOGRAM ST SEGMENT DEPRESSION [None]
  - ELECTROCARDIOGRAM ST SEGMENT ELEVATION [None]
  - ELECTROCARDIOGRAM T WAVE INVERSION [None]
  - THERAPEUTIC AGENT TOXICITY [None]
  - WANDERING PACEMAKER [None]
